FAERS Safety Report 10027891 (Version 2)
Quarter: 2014Q1

REPORT INFORMATION
  Report Type: Spontaneous
  Country: IE (occurrence: IE)
  Receive Date: 20140321
  Receipt Date: 20140327
  Transmission Date: 20141002
  Serious: Yes (Hospitalization, Other)
  Sender: FDA-Public Use
  Company Number: IE-BAYER-2014-038792

PATIENT
  Sex: Male

DRUGS (4)
  1. NIFEDIPINE [Suspect]
     Route: 064
  2. NIFEDIPINE [Suspect]
     Route: 064
  3. LABETALOL [Concomitant]
     Route: 064
  4. LABETALOL [Concomitant]
     Route: 064

REACTIONS (4)
  - Neonatal respiratory distress syndrome [Recovered/Resolved]
  - Jaundice neonatal [Recovered/Resolved]
  - Premature baby [None]
  - Foetal exposure during pregnancy [None]
